FAERS Safety Report 6944908-1 (Version None)
Quarter: 2010Q3

REPORT INFORMATION
  Report Type: 
  Country: None (occurrence: None)
  Receive Date: 20100827
  Receipt Date: 20100817
  Transmission Date: 20110219
  Serious: Yes (Hospitalization, Other)
  Sender: FDA-Public Use
  Company Number: ES-BAYER-201022638GPV

PATIENT
  Age: 72 Year
  Sex: Male
  Weight: 76 kg

DRUGS (5)
  1. SORAFENIB [Suspect]
     Indication: HEPATIC NEOPLASM MALIGNANT
     Dosage: TOTAL DAILY DOSE: 800 MG
     Route: 048
     Dates: start: 20100120, end: 20100309
  2. ATARAX [Concomitant]
     Indication: PSORIASIS
     Route: 048
     Dates: start: 20020101
  3. ACETAMINOPHEN [Concomitant]
     Indication: PAIN
     Route: 048
     Dates: start: 20020101
  4. NOVOMIX [Concomitant]
     Indication: TYPE 2 DIABETES MELLITUS
     Route: 030
     Dates: start: 20020101
  5. ENEBREL [Concomitant]
     Indication: PSORIASIS
     Route: 048
     Dates: start: 20020101

REACTIONS (2)
  - BRONCHITIS [None]
  - ENCEPHALOPATHY [None]
